FAERS Safety Report 6758540-6 (Version None)
Quarter: 2010Q2

REPORT INFORMATION
  Report Type: 
  Country: None (occurrence: None)
  Receive Date: 20100607
  Receipt Date: 20100528
  Transmission Date: 20101027
  Serious: Yes (Life-Threatening)
  Sender: FDA-Public Use
  Company Number: B0659071A

PATIENT
  Sex: Male

DRUGS (1)
  1. AUGMENTIN '125' [Suspect]
     Indication: PROPHYLAXIS
     Dosage: 2.2G PER DAY
     Route: 042
     Dates: start: 20100507, end: 20100507

REACTIONS (7)
  - BLOOD PRESSURE DECREASED [None]
  - BRONCHOSPASM [None]
  - CHILLS [None]
  - ERYTHEMA [None]
  - HYPERHIDROSIS [None]
  - PERIORBITAL OEDEMA [None]
  - PRURITUS [None]
